FAERS Safety Report 5703407-5 (Version None)
Quarter: 2008Q2

REPORT INFORMATION
  Report Type: 
  Country: None (occurrence: None)
  Receive Date: 20080411
  Receipt Date: 20080330
  Transmission Date: 20081010
  Serious: Yes (Life-Threatening, Hospitalization)
  Sender: FDA-Public Use
  Company Number: FR-GILEAD-2008-0015870

PATIENT
  Age: 42 Year
  Sex: Male
  Weight: 61 kg

DRUGS (2)
  1. TRUVADA [Suspect]
     Route: 048
     Dates: start: 20070901, end: 20080301
  2. KALETRA [Suspect]
     Indication: HIV INFECTION
     Dates: start: 20070920

REACTIONS (9)
  - ABDOMINAL PAIN [None]
  - CARDIAC FAILURE [None]
  - CONGESTIVE CARDIOMYOPATHY [None]
  - JAUNDICE [None]
  - LIVER FUNCTION TEST ABNORMAL [None]
  - MYOPERICARDITIS [None]
  - OEDEMA PERIPHERAL [None]
  - PULMONARY OEDEMA [None]
  - WEIGHT INCREASED [None]
